FAERS Safety Report 7478400-5 (Version None)
Quarter: 2011Q2

REPORT INFORMATION
  Report Type: 
  Country: None (occurrence: None)
  Receive Date: 20110513
  Receipt Date: 20100720
  Transmission Date: 20111010
  Serious: Yes (Other)
  Sender: FDA-Public Use
  Company Number: US-PFIZER INC-2010023124

PATIENT
  Age: 73 Year
  Sex: Female
  Weight: 52.608 kg

DRUGS (7)
  1. NEURONTIN [Suspect]
     Indication: BACK PAIN
     Dosage: UNK, 3X/DAY
     Route: 048
  2. CELEBREX [Suspect]
     Indication: ARTHRITIS
     Dosage: 200 MG, 2X/DAY
     Route: 048
  3. MORPHINE [Concomitant]
     Indication: PAIN
     Dosage: ^15 MG AND 30 MG^  THREE TIMES A DAY
  4. HYDROXYCHLOROQUINE [Concomitant]
     Dosage: 200 MG, 2X/DAY
  5. ESTRADIOL [Concomitant]
     Indication: HORMONE THERAPY
     Dosage: 0.5 MG, UNK
     Route: 048
  6. OXYBUTYNIN [Concomitant]
     Indication: BLADDER DISORDER
     Dosage: 5 MG, 3X/DAY
     Route: 048
  7. AMITRIPTYLINE [Concomitant]
     Indication: SLEEP DISORDER
     Dosage: 100 MG, UNK
     Route: 048

REACTIONS (5)
  - LARYNGITIS [None]
  - DYSPHONIA [None]
  - PAIN [None]
  - LOCALISED INFECTION [None]
  - FATIGUE [None]
